FAERS Safety Report 24401561 (Version 1)
Quarter: 2024Q4

REPORT INFORMATION
  Report Type: Spontaneous
  Country: US (occurrence: US)
  Receive Date: 20241007
  Receipt Date: 20241007
  Transmission Date: 20250114
  Serious: No
  Sender: ALK-ABELLO
  Company Number: US-ALK-ABELLO A/S-2024AA003513

PATIENT

DRUGS (11)
  1. CARYA ILLINOINENSIS POLLEN [Suspect]
     Active Substance: CARYA ILLINOINENSIS POLLEN
     Indication: Diagnostic procedure
  2. DIPHENHYDRAMINE [Concomitant]
     Active Substance: DIPHENHYDRAMINE
     Indication: Product used for unknown indication
     Dosage: 5 MILLILITER (12.5 MG/5 ML)
     Route: 048
     Dates: start: 20240823
  3. PREDNISOLONE [Concomitant]
     Active Substance: PREDNISOLONE
     Indication: Product used for unknown indication
     Dosage: 15 MILLIGRAM
     Route: 048
     Dates: start: 20240808
  4. TRIAMCINOLONE ACETONIDE [Concomitant]
     Active Substance: TRIAMCINOLONE ACETONIDE
     Indication: Product used for unknown indication
     Dosage: 0.025 % TOPICAL CREAM
     Route: 061
     Dates: start: 20240808
  5. TRIAMCINOLONE ACETONIDE [Concomitant]
     Active Substance: TRIAMCINOLONE ACETONIDE
     Indication: Product used for unknown indication
     Dosage: 0.1 % TOPICAL OINTMENT
     Route: 061
     Dates: start: 20240320
  6. DAE BULK 764 [Concomitant]
  7. DAE BULK 765 [Concomitant]
  8. DAE BULK 763 [Concomitant]
  9. DAE BULK 766 [Concomitant]
  10. PISTACHIO NUT [Concomitant]
     Active Substance: PISTACHIO
  11. ALLERGENIC EXTRACT- PEANUT ARACHIS HYPOGAEA [Concomitant]
     Active Substance: ALLERGENIC EXTRACT- PEANUT ARACHIS HYPOGAEA

REACTIONS (1)
  - False negative investigation result [Unknown]
